FAERS Safety Report 9237062 (Version 1)
Quarter: 2013Q2

REPORT INFORMATION
  Report Type: Spontaneous
  Country: US (occurrence: None)
  Receive Date: 20130417
  Receipt Date: 20130417
  Transmission Date: 20140414
  Serious: Yes (Life-Threatening, Hospitalization)
  Sender: FDA-Public Use
  Company Number: None

PATIENT
  Age: 77 Year
  Sex: Male
  Weight: 85 kg

DRUGS (2)
  1. WARFARIN [Suspect]
     Indication: ATRIAL FIBRILLATION
     Dosage: 5 MG  EVERY DAY  PO?06/16/2007  THRU  N/A
     Route: 048
     Dates: start: 20070616
  2. WARFARIN [Suspect]
     Indication: CARDIAC FAILURE CONGESTIVE
     Dosage: 5 MG  EVERY DAY  PO?06/16/2007  THRU  N/A
     Route: 048
     Dates: start: 20070616

REACTIONS (5)
  - Oesophageal ulcer haemorrhage [None]
  - Barrett^s oesophagus [None]
  - Gastric haemorrhage [None]
  - Haemoglobin decreased [None]
  - Oesophageal ulcer [None]
